FAERS Safety Report 4521349-8 (Version None)
Quarter: 2004Q4

REPORT INFORMATION
  Report Type: 
  Country: None (occurrence: None)
  Receive Date: 20041029
  Receipt Date: 20040809
  Transmission Date: 20050328
  Serious: No
  Sender: FDA-Public Use
  Company Number: 2004-119262-NL

PATIENT
  Age: 25 Year
  Sex: Female

DRUGS (3)
  1. NUVARING [Suspect]
     Indication: CONTRACEPTION
     Dosage: DF DAILY VAGINAL
     Route: 067
     Dates: start: 20040712
  2. ADVIL [Concomitant]
  3. TYLENOL (CAPLET) [Concomitant]

REACTIONS (3)
  - INADEQUATE LUBRICATION [None]
  - RASH PAPULAR [None]
  - VAGINAL MYCOSIS [None]
